FAERS Safety Report 23366837 (Version 1)
Quarter: 2024Q1

REPORT INFORMATION
  Report Type: Spontaneous
  Country: CA (occurrence: CA)
  Receive Date: 20240104
  Receipt Date: 20240104
  Transmission Date: 20240410
  Serious: Yes (Death)
  Sender: FDA-Public Use
  Company Number: CA-PFIZER INC-202400000024

PATIENT
  Age: 79 Year
  Sex: Male

DRUGS (5)
  1. SOMATROPIN [Suspect]
     Active Substance: SOMATROPIN
     Indication: Growth hormone deficiency
     Dosage: 300 UG, 1X/DAY, DISCONTINUED
     Route: 058
     Dates: start: 20211018
  2. SOMATROPIN [Suspect]
     Active Substance: SOMATROPIN
     Dosage: 300 UG, 1X/DAY, DISCONTINUED
     Route: 058
     Dates: start: 2022
  3. SOMATROPIN [Suspect]
     Active Substance: SOMATROPIN
     Dosage: 900 UG, 1X/DAY
     Route: 058
     Dates: start: 202304, end: 202310
  4. AMLODIPINE [Concomitant]
     Active Substance: AMLODIPINE BESYLATE
     Dosage: 10 MG
  5. PERINDOPRIL [Concomitant]
     Active Substance: PERINDOPRIL
     Dosage: 4 MG

REACTIONS (2)
  - Death [Fatal]
  - Off label use [Unknown]

NARRATIVE: CASE EVENT DATE: 20211018
